FAERS Safety Report 14152810 (Version 4)
Quarter: 2018Q1

REPORT INFORMATION
  Report Type: Report from Study
  Country: GB (occurrence: GB)
  Receive Date: 20171102
  Receipt Date: 20180312
  Transmission Date: 20180508
  Serious: Yes (Hospitalization, Other)
  Sender: FDA-Public Use
  Company Number: GB-JNJFOC-20171032022

PATIENT
  Age: 50 Year
  Sex: Female
  Weight: 67 kg

DRUGS (12)
  1. BRUFEN RETARD [Concomitant]
     Active Substance: IBUPROFEN
     Route: 065
     Dates: start: 20171129
  2. ACITRETIN. [Suspect]
     Active Substance: ACITRETIN
     Indication: PRODUCT USED FOR UNKNOWN INDICATION
     Route: 065
     Dates: start: 20160501, end: 20171001
  3. STELARA [Suspect]
     Active Substance: USTEKINUMAB
     Indication: PSORIASIS
     Route: 058
     Dates: start: 2017
  4. CITALOPRAM [Concomitant]
     Active Substance: CITALOPRAM HYDROBROMIDE
     Route: 065
     Dates: start: 20140101
  5. LANSOPRAZOLE. [Concomitant]
     Active Substance: LANSOPRAZOLE
     Route: 065
     Dates: start: 20150101
  6. DIHYDROCODEINE [Concomitant]
     Active Substance: DIHYDROCODEINE
     Route: 065
     Dates: start: 20111129
  7. RANITIDINE. [Concomitant]
     Active Substance: RANITIDINE
     Route: 065
     Dates: start: 20130408
  8. PARACETAMOL [Concomitant]
     Active Substance: ACETAMINOPHEN
     Route: 065
     Dates: start: 20111129
  9. METHOTREXATE. [Concomitant]
     Active Substance: METHOTREXATE
     Route: 065
     Dates: start: 20171001
  10. STELARA [Suspect]
     Active Substance: USTEKINUMAB
     Indication: PSORIASIS
     Route: 058
     Dates: start: 20150609
  11. DIPROSALIC [Concomitant]
     Active Substance: BETAMETHASONE DIPROPIONATE
     Route: 065
     Dates: start: 20140904
  12. THIAMINE HYDROCHLORIDE. [Concomitant]
     Active Substance: THIAMINE HYDROCHLORIDE
     Route: 065
     Dates: start: 20150316

REACTIONS (3)
  - Arthritis [Recovered/Resolved]
  - Cellulitis [Recovered/Resolved]
  - Psoriasis [Recovered/Resolved with Sequelae]

NARRATIVE: CASE EVENT DATE: 20170820
